FAERS Safety Report 17335448 (Version 1)
Quarter: 2020Q1

REPORT INFORMATION
  Report Type: Spontaneous
  Country: US (occurrence: US)
  Receive Date: 20200128
  Receipt Date: 20200128
  Transmission Date: 20200409
  Serious: Yes (Other)
  Sender: FDA-Public Use
  Company Number: US-LUPIN PHARMACEUTICALS INC.-2019-08114

PATIENT
  Age: 68 Year
  Sex: Male

DRUGS (3)
  1. LURASIDONE [Suspect]
     Active Substance: LURASIDONE
     Dosage: 80 MILLIGRAM, QD, TITRATED TO 80 MG PER DAY
     Route: 065
  2. LURASIDONE [Suspect]
     Active Substance: LURASIDONE
     Dosage: 20 MILLIGRAM, QD
     Route: 065
  3. LURASIDONE [Suspect]
     Active Substance: LURASIDONE
     Indication: BIPOLAR DISORDER
     Dosage: 20 MILLIGRAM, QD
     Route: 065

REACTIONS (2)
  - Akathisia [Recovering/Resolving]
  - Parkinsonism [Unknown]
